FAERS Safety Report 16974534 (Version 3)
Quarter: 2020Q1

REPORT INFORMATION
  Report Type: Spontaneous
  Country: BR (occurrence: BR)
  Receive Date: 20191030
  Receipt Date: 20200319
  Transmission Date: 20200409
  Serious: Yes (Disabling)
  Sender: FDA-Public Use
  Company Number: BR-SA-2019SA297405

PATIENT
  Sex: Female

DRUGS (1)
  1. CEREZYME [Suspect]
     Active Substance: IMIGLUCERASE
     Dosage: UNK
     Route: 065

REACTIONS (7)
  - Arthralgia [Unknown]
  - Bone pain [Unknown]
  - General physical health deterioration [Unknown]
  - Burning sensation [Unknown]
  - Bedridden [Unknown]
  - Bone disorder [Unknown]
  - Dysstasia [Unknown]
